FAERS Safety Report 16743183 (Version 1)
Quarter: 2019Q3

REPORT INFORMATION
  Report Type: Spontaneous
  Country: US (occurrence: US)
  Receive Date: 20190827
  Receipt Date: 20190827
  Transmission Date: 20191005
  Serious: Yes (Other)
  Sender: FDA-Public Use
  Company Number: US-ELI_LILLY_AND_COMPANY-US201908008294

PATIENT
  Age: 60 Year
  Sex: Female

DRUGS (3)
  1. BASAGLAR [Suspect]
     Active Substance: INSULIN GLARGINE
     Indication: PRODUCT USED FOR UNKNOWN INDICATION
     Dosage: 35 U, UNKNOWN
     Route: 065
  2. TRULICITY [Suspect]
     Active Substance: DULAGLUTIDE
     Indication: PRODUCT USED FOR UNKNOWN INDICATION
     Dosage: 0.75 U, UNKNOWN
     Route: 065
     Dates: start: 201908
  3. BASAGLAR [Suspect]
     Active Substance: INSULIN GLARGINE
     Dosage: 30 UNK
     Route: 065

REACTIONS (1)
  - Blood glucose decreased [Recovered/Resolved]

NARRATIVE: CASE EVENT DATE: 201908
